FAERS Safety Report 8487174 (Version 2)
Quarter: 2012Q4

REPORT INFORMATION
  Report Type: 
  Country: US (occurrence: US)
  Receive Date: 20120402
  Receipt Date: 20121019
  Transmission Date: 20130627
  Serious: Yes (Hospitalization, Other)
  Sender: FDA-Public Use
  Company Number: US-PFIZER INC-2012080593

PATIENT
  Age: 20 Year
  Sex: Male
  Weight: 90.7 kg

DRUGS (6)
  1. GENOTROPIN [Suspect]
     Indication: PRADER-WILLI SYNDROME
     Dosage: 2 mg, 1x/day
     Route: 058
     Dates: start: 20060911
  2. TOPAMAX [Concomitant]
     Dosage: 25 mg, UNK
  3. ZOLOFT [Concomitant]
     Dosage: 25 mg, UNK
  4. LITHIUM CARBONATE [Concomitant]
     Dosage: 150 mg, UNK
  5. SYNTHROID [Concomitant]
     Dosage: 75 ug, UNK
  6. VITAMIN D [Concomitant]
     Dosage: 2000 IU, UNK

REACTIONS (4)
  - Abnormal behaviour [Unknown]
  - Anger [Unknown]
  - Fall [Unknown]
  - Upper limb fracture [Unknown]
